FAERS Safety Report 21989643 (Version 1)
Quarter: 2023Q1

REPORT INFORMATION
  Report Type: Spontaneous
  Country: US (occurrence: None)
  Receive Date: 20230213
  Receipt Date: 20230213
  Transmission Date: 20230418
  Serious: No
  Sender: FDA-Public Use
  Company Number: None

PATIENT
  Age: 87 Year
  Sex: Male
  Weight: 102.78 kg

DRUGS (8)
  1. ABIRATERONE [Suspect]
     Active Substance: ABIRATERONE
     Indication: Prostate cancer
     Dosage: FREQUENCY : DAILY;?
     Route: 048
     Dates: start: 202211
  2. ALBUTEROL [Concomitant]
  3. ARMOUR THYROID [Concomitant]
  4. COZAAR [Concomitant]
     Active Substance: LOSARTAN POTASSIUM
  5. VITAMIN D3 [Concomitant]
  6. FLONASE [Concomitant]
  7. LOSARTAN [Concomitant]
  8. PLAVIX [Concomitant]

REACTIONS (1)
  - Hepatic enzyme increased [None]
